FAERS Safety Report 7933688-9 (Version None)
Quarter: 2011Q4

REPORT INFORMATION
  Report Type: 
  Country: None (occurrence: None)
  Receive Date: 20111122
  Receipt Date: 20111114
  Transmission Date: 20120403
  Serious: Yes (Hospitalization, Other)
  Sender: FDA-Public Use
  Company Number: PHHY2011CA74744

PATIENT
  Sex: Male

DRUGS (8)
  1. DIVALPROEX SODIUM [Concomitant]
     Dosage: 750 MG, HS
  2. DIVALPROEX SODIUM [Concomitant]
     Dosage: 500 MG, BID
  3. FOLIC ACID [Concomitant]
     Dosage: 5 MG, Q AM
  4. RISPERDAL [Concomitant]
     Dosage: 37.5 MG, Q 2 WEEKS
     Route: 030
  5. VALPROATE SODIUM [Suspect]
  6. CLOZARIL [Suspect]
     Indication: SCHIZOPHRENIA
     Dosage: 750 MG
     Route: 048
     Dates: start: 20100211, end: 20110801
  7. ANTIPSYCHOTICS [Concomitant]
  8. ATROPINE SULFATE [Concomitant]
     Dosage: 2 DRP, HS

REACTIONS (5)
  - DIARRHOEA [None]
  - TOXICITY TO VARIOUS AGENTS [None]
  - SEDATION [None]
  - ANTIPSYCHOTIC DRUG LEVEL ABOVE THERAPEUTIC [None]
  - DYSARTHRIA [None]
